FAERS Safety Report 10654415 (Version 1)
Quarter: 2014Q4

REPORT INFORMATION
  Report Type: Spontaneous
  Country: US (occurrence: None)
  Receive Date: 20141215
  Receipt Date: 20141215
  Transmission Date: 20150529
  Serious: Yes (Hospitalization)
  Sender: FDA-Public Use
  Company Number: None

PATIENT

DRUGS (5)
  1. LISNOPRIL [Concomitant]
  2. GLEEVEC [Suspect]
     Active Substance: IMATINIB MESYLATE
     Indication: SOFT TISSUE SARCOMA
     Route: 048
     Dates: start: 200705, end: 201409
  3. GLEEVEC [Suspect]
     Active Substance: IMATINIB MESYLATE
     Indication: GASTRIC CANCER
     Route: 048
     Dates: start: 200705, end: 201409
  4. CITALOPRAM(DOSES AND DURATION UKNOWN) [Concomitant]
  5. GLEEVEC [Suspect]
     Active Substance: IMATINIB MESYLATE
     Indication: MALIGNANT CONNECTIVE TISSUE NEOPLASM
     Route: 048
     Dates: start: 200705, end: 201409

REACTIONS (1)
  - Thrombosis [None]
